FAERS Safety Report 7607438-X (Version None)
Quarter: 2011Q3

REPORT INFORMATION
  Report Type: 
  Country: None (occurrence: None)
  Receive Date: 20110713
  Receipt Date: 20100119
  Transmission Date: 20111222
  Serious: Yes (Other)
  Sender: FDA-Public Use
  Company Number: DE-GENENTECH-318235

PATIENT
  Age: 66 Year
  Sex: Female

DRUGS (2)
  1. LUCENTIS [Suspect]
     Indication: AGE-RELATED MACULAR DEGENERATION
     Route: 031
  2. BRAUNOL [Concomitant]
     Indication: PRODUCT USED FOR UNKNOWN INDICATION

REACTIONS (8)
  - EYE ALLERGY [None]
  - VISUAL ACUITY REDUCED [None]
  - NECK PAIN [None]
  - EYE INFECTION [None]
  - ANXIETY [None]
  - RETINAL TEAR [None]
  - EYE PAIN [None]
  - METAMORPHOPSIA [None]
